FAERS Safety Report 25080220 (Version 1)
Quarter: 2025Q1

REPORT INFORMATION
  Report Type: Spontaneous
  Country: DE (occurrence: DE)
  Receive Date: 20250314
  Receipt Date: 20250314
  Transmission Date: 20250408
  Serious: Yes (Life-Threatening, Hospitalization)
  Sender: BOEHRINGER INGELHEIM
  Company Number: DE-Komodo Health-a23aa000005YuXxAAK

PATIENT
  Age: 55 Year
  Sex: Female

DRUGS (1)
  1. OLODATEROL HYDROCHLORIDE\TIOTROPIUM BROMIDE MONOHYDRATE [Suspect]
     Active Substance: OLODATEROL HYDROCHLORIDE\TIOTROPIUM BROMIDE MONOHYDRATE
     Indication: Chronic obstructive pulmonary disease

REACTIONS (7)
  - Septic shock [Unknown]
  - Large intestine perforation [Unknown]
  - Anterior segment ischaemia [Unknown]
  - Peritonitis [Unknown]
  - Overdose [Recovered/Resolved]
  - Product prescribing issue [Unknown]
  - Asthma [Unknown]
